FAERS Safety Report 14734211 (Version 2)
Quarter: 2018Q2

REPORT INFORMATION
  Report Type: Report from Study
  Country: US (occurrence: AR)
  Receive Date: 20180409
  Receipt Date: 20180425
  Transmission Date: 20180711
  Serious: Yes (Hospitalization, Other)
  Sender: FDA-Public Use
  Company Number: US-SUNOVION-2018SUN001319

PATIENT
  Sex: Female

DRUGS (5)
  1. INDACATEROL AND GLYCOPYRROLATE [Suspect]
     Active Substance: GLYCOPYRROLATE\INDACATEROL MALEATE
     Indication: PRODUCT USED FOR UNKNOWN INDICATION
     Dosage: UNK
     Route: 065
     Dates: start: 2015
  2. DIOVAN [Suspect]
     Active Substance: VALSARTAN
     Dosage: 320 MG, QD
     Route: 065
     Dates: end: 201801
  3. DIOVAN [Suspect]
     Active Substance: VALSARTAN
     Indication: HYPERTENSION
     Dosage: 320 MG, QD
     Route: 065
     Dates: start: 2015, end: 201712
  4. ANTIDEPRESSANTS [Concomitant]
     Active Substance: UNSPECIFIED INGREDIENT
  5. DIOVAN [Suspect]
     Active Substance: VALSARTAN
     Dosage: 320 MG, QD
     Route: 065

REACTIONS (10)
  - Chronic obstructive pulmonary disease [Unknown]
  - Bronchitis chronic [Unknown]
  - Myocardial infarction [Unknown]
  - Rheumatic disorder [Unknown]
  - Fatigue [Unknown]
  - Drug ineffective [Unknown]
  - Asthma [Unknown]
  - Hypertension [Unknown]
  - Hypersensitivity [Unknown]
  - Memory impairment [Unknown]
